FAERS Safety Report 5040296-9 (Version None)
Quarter: 2006Q2

REPORT INFORMATION
  Report Type: 
  Country: None (occurrence: None)
  Receive Date: 20060630
  Receipt Date: 20060403
  Transmission Date: 20061013
  Serious: No
  Sender: FDA-Public Use
  Company Number: US-BRISTOL-MYERS SQUIBB COMPANY-13334917

PATIENT
  Age: 62 Year
  Sex: Female
  Weight: 50 kg

DRUGS (16)
  1. ORENCIA [Suspect]
     Indication: RHEUMATOID ARTHRITIS
     Dosage: DOSAGE FORM = VIALS
     Route: 042
     Dates: start: 20060330
  2. PREMARIN [Concomitant]
  3. FOLIC ACID [Concomitant]
  4. METHOTREXATE [Concomitant]
  5. PAXIL [Concomitant]
  6. FOSAMAX [Concomitant]
  7. NORVASC [Concomitant]
  8. SINGULAIR [Concomitant]
  9. VITAMIN D [Concomitant]
  10. ELAVIL [Concomitant]
  11. VAGIFEM [Concomitant]
  12. TYLENOL (CAPLET) [Concomitant]
  13. PSYLLIUM [Concomitant]
  14. BETAMETHASONE [Concomitant]
  15. CALCIUM GLUCONATE [Concomitant]
  16. MULTI-VITAMIN [Concomitant]

REACTIONS (1)
  - BURNING SENSATION [None]
